FAERS Safety Report 17423447 (Version 1)
Quarter: 2020Q1

REPORT INFORMATION
  Report Type: Spontaneous
  Country: US (occurrence: US)
  Receive Date: 20200131
  Receipt Date: 20200131
  Transmission Date: 20200409
  Serious: No
  Sender: FDA-Public Use
  Company Number: None

PATIENT

DRUGS (1)
  1. CEFAZOLIN IN D5W CEFAZOLINAND DEXTROSE [Suspect]
     Active Substance: CEFAZOLIN\DEXTROSE

REACTIONS (2)
  - Product barcode issue [None]
  - Product label confusion [None]
